FAERS Safety Report 12865490 (Version 2)
Quarter: 2016Q4

REPORT INFORMATION
  Report Type: Spontaneous
  Country: US (occurrence: US)
  Receive Date: 20161020
  Receipt Date: 20161020
  Transmission Date: 20170207
  Serious: No
  Sender: FDA-Public Use
  Company Number: US-PFIZER INC-3134581

PATIENT
  Age: 54 Year
  Sex: Female

DRUGS (6)
  1. LORTAB [Suspect]
     Active Substance: ACETAMINOPHEN\HYDROCODONE BITARTRATE
     Indication: FIBROMYALGIA
     Dosage: UNK
  2. NEURONTIN [Suspect]
     Active Substance: GABAPENTIN
     Indication: FIBROMYALGIA
     Dosage: UNK
  3. MEPERIDINE HCL [Suspect]
     Active Substance: MEPERIDINE HYDROCHLORIDE
     Indication: FIBROMYALGIA
     Route: 042
  4. CODEINE [Suspect]
     Active Substance: CODEINE
     Indication: FIBROMYALGIA
  5. OPANA [Suspect]
     Active Substance: OXYMORPHONE HYDROCHLORIDE
     Indication: FIBROMYALGIA
     Dosage: UNK
  6. PERCOCET /00446701/ [Suspect]
     Active Substance: ACETAMINOPHEN\OXYCODONE HYDROCHLORIDE\OXYCODONE TEREPHTHALATE
     Indication: FIBROMYALGIA

REACTIONS (2)
  - Loose tooth [Unknown]
  - Malaise [Unknown]
